FAERS Safety Report 5778560-8 (Version None)
Quarter: 2008Q2

REPORT INFORMATION
  Report Type: 
  Country: None (occurrence: None)
  Receive Date: 20080618
  Receipt Date: 20080618
  Transmission Date: 20081010
  Serious: Yes (Death, Other)
  Sender: FDA-Public Use
  Company Number: None

PATIENT
  Age: 69 Year
  Sex: Male
  Weight: 81.6475 kg

DRUGS (1)
  1. ZOMETA [Suspect]

REACTIONS (3)
  - DIALYSIS [None]
  - NEPHRITIS [None]
  - RENAL FAILURE [None]
